FAERS Safety Report 15880481 (Version 1)
Quarter: 2019Q1

REPORT INFORMATION
  Report Type: Spontaneous
  Country: US (occurrence: US)
  Receive Date: 20190128
  Receipt Date: 20190128
  Transmission Date: 20190417
  Serious: Yes (Other)
  Sender: FDA-Public Use
  Company Number: None

PATIENT
  Age: 56 Year
  Sex: Female
  Weight: 107.55 kg

DRUGS (16)
  1. TEMAZEPAM. [Concomitant]
     Active Substance: TEMAZEPAM
  2. INVEGA [Concomitant]
     Active Substance: PALIPERIDONE
  3. GEODON [Suspect]
     Active Substance: ZIPRASIDONE HYDROCHLORIDE\ZIPRASIDONE MESYLATE
     Indication: BIPOLAR DISORDER
     Route: 048
     Dates: start: 20130221, end: 20190127
  4. RANITIDINE. [Concomitant]
     Active Substance: RANITIDINE
  5. FLUOXETINE [Concomitant]
     Active Substance: FLUOXETINE HYDROCHLORIDE
  6. ZIPRASIDONE. [Concomitant]
     Active Substance: ZIPRASIDONE
  7. BUMETANIDE. [Concomitant]
     Active Substance: BUMETANIDE
  8. SIMVASTATIN. [Concomitant]
     Active Substance: SIMVASTATIN
  9. SYNTHROID [Concomitant]
     Active Substance: LEVOTHYROXINE SODIUM
  10. VITAMIN D [Concomitant]
     Active Substance: CHOLECALCIFEROL
  11. POTASSIUM CHLORIDE. [Concomitant]
     Active Substance: POTASSIUM CHLORIDE
  12. ASPIRIN. [Concomitant]
     Active Substance: ASPIRIN
  13. DEPAKOTE [Suspect]
     Active Substance: DIVALPROEX SODIUM
     Indication: BIPOLAR I DISORDER
     Route: 048
     Dates: start: 20131231
  14. TUMS [Concomitant]
     Active Substance: CALCIUM CARBONATE
  15. FERROUS SULFATE. [Concomitant]
     Active Substance: FERROUS SULFATE
  16. DIVALPROEX [Concomitant]
     Active Substance: DIVALPROEX SODIUM

REACTIONS (3)
  - Alopecia [None]
  - Self esteem decreased [None]
  - Antisocial behaviour [None]

NARRATIVE: CASE EVENT DATE: 20140101
